FAERS Safety Report 10366275 (Version 1)
Quarter: 2014Q1

REPORT INFORMATION
  Report Type: Spontaneous
  Country: US (occurrence: None)
  Receive Date: 20140306
  Receipt Date: 20140306
  Transmission Date: 20141002
  Serious: Yes (Hospitalization)
  Sender: FDA-Public Use
  Company Number: 163-21880-13022569

PATIENT
  Age: 71 Year
  Sex: Female
  Weight: 49.44 kg

DRUGS (8)
  1. REVLIMID [Suspect]
     Indication: PLASMA CELL MYELOMA IN REMISSION
     Route: 048
     Dates: start: 20130111
  2. PREDNISONE (PREDNISONE) [Concomitant]
  3. ALKERAN (MELPHALAN) [Concomitant]
  4. SYNTHROID (LEVOTHYROXINE SODIUM) [Concomitant]
  5. ADVAIR DISKUS [Concomitant]
  6. SINGULAIR (MONTELUKAST SODIUM) [Concomitant]
  7. PRO AIR HFA (SALBUTAMOL SULFATE) [Concomitant]
  8. ZOMETA (ZOLEDRONIC ACID) [Concomitant]

REACTIONS (1)
  - Haemoglobin decreased [None]
